FAERS Safety Report 18654897 (Version 1)
Quarter: 2020Q4

REPORT INFORMATION
  Report Type: Spontaneous
  Country: US (occurrence: US)
  Receive Date: 20201223
  Receipt Date: 20201223
  Transmission Date: 20210114
  Serious: Yes (Other)
  Sender: FDA-Public Use
  Company Number: US-ASTRAZENECA-2019SF18861

PATIENT

DRUGS (4)
  1. CABOZANTINIB [Concomitant]
     Active Substance: CABOZANTINIB
  2. OSIMERTINIB. [Suspect]
     Active Substance: OSIMERTINIB
     Indication: NON-SMALL CELL LUNG CANCER
     Route: 048
  3. GEFITINIB. [Suspect]
     Active Substance: GEFITINIB
     Route: 048
  4. CRIZOTINIB [Concomitant]
     Active Substance: CRIZOTINIB

REACTIONS (2)
  - Acquired gene mutation [Unknown]
  - Drug resistance [Unknown]
